FAERS Safety Report 5334718-3 (Version None)
Quarter: 2007Q2

REPORT INFORMATION
  Report Type: 
  Country: None (occurrence: None)
  Receive Date: 20070306
  Receipt Date: 20060808
  Transmission Date: 20071010
  Serious: Yes (Hospitalization)
  Sender: FDA-Public Use
  Company Number: A03200605073

PATIENT

DRUGS (13)
  1. PLAVIX [Suspect]
     Dosage: NI UNK - ORAL
     Route: 048
     Dates: end: 20060728
  2. ACETYLSALICYLIC ACID SRT [Suspect]
     Dosage: NI UNK - ORAL
     Route: 048
     Dates: end: 20060728
  3. COUMADIN [Suspect]
     Dosage: NI UNK - ORAL
     Route: 048
  4. EPLERENONE [Concomitant]
  5. FUROSEMIDE [Concomitant]
  6. ATORVASTATIN [Concomitant]
  7. GLYCERYL TRINITRATE [Concomitant]
  8. EZETIMIBE [Concomitant]
  9. CARVEDILOL [Concomitant]
  10. LOSARTAN POTASSIUM [Concomitant]
  11. DIGOXIN [Concomitant]
  12. FOLIC ACID [Concomitant]
  13. MULTIVITAMIN [Concomitant]

REACTIONS (5)
  - GASTRITIS [None]
  - HAEMOGLOBIN DECREASED [None]
  - MELAENA [None]
  - OESOPHAGITIS ULCERATIVE [None]
  - PLATELET COUNT DECREASED [None]
